FAERS Safety Report 7214398-2 (Version None)
Quarter: 2011Q1

REPORT INFORMATION
  Report Type: 
  Country: None (occurrence: None)
  Receive Date: 20110107
  Receipt Date: 20101230
  Transmission Date: 20110831
  Serious: Yes (Hospitalization, Disabling)
  Sender: FDA-Public Use
  Company Number: PHHY2009AU51524

PATIENT
  Sex: Male
  Weight: 72 kg

DRUGS (3)
  1. CLOZAPINE [Suspect]
     Indication: SCHIZOPHRENIA, CATATONIC TYPE
     Dosage: 700 MG
     Route: 048
     Dates: start: 20061003
  2. CLOZAPINE [Suspect]
     Dosage: 25 MG/DAY
     Dates: start: 20101224
  3. LITHIUM CARBONATE [Concomitant]
     Indication: SCHIZOPHRENIA, CATATONIC TYPE
     Dosage: 900 MG NOCTE
     Route: 048

REACTIONS (4)
  - PSYCHOTIC DISORDER [None]
  - CONDITION AGGRAVATED [None]
  - AGGRESSION [None]
  - TREATMENT NONCOMPLIANCE [None]
